FAERS Safety Report 25480924 (Version 1)
Quarter: 2025Q2

REPORT INFORMATION
  Report Type: Report from Study
  Country: US (occurrence: US)
  Receive Date: 20250625
  Receipt Date: 20250625
  Transmission Date: 20250716
  Serious: Yes (Other)
  Sender: ABBVIE
  Company Number: US-ABBVIE-6336890

PATIENT
  Age: 37 Year
  Sex: Female

DRUGS (1)
  1. HUMIRA [Suspect]
     Active Substance: ADALIMUMAB
     Indication: Product used for unknown indication
     Route: 058
     Dates: start: 2020, end: 202501

REACTIONS (17)
  - Loss of consciousness [Unknown]
  - Condition aggravated [Not Recovered/Not Resolved]
  - Spinal operation [Unknown]
  - Knee operation [Unknown]
  - Drug ineffective [Unknown]
  - Electric shock sensation [Unknown]
  - Bone pain [Unknown]
  - Systemic lupus erythematosus [Unknown]
  - Pain in extremity [Unknown]
  - Spinal disorder [Unknown]
  - Arthralgia [Unknown]
  - Asthenia [Unknown]
  - Rash [Unknown]
  - Headache [Unknown]
  - Vitamin D deficiency [Unknown]
  - Amnesia [Unknown]
  - Gait inability [Unknown]

NARRATIVE: CASE EVENT DATE: 20211201
